FAERS Safety Report 11718518 (Version 3)
Quarter: 2015Q4

REPORT INFORMATION
  Report Type: Spontaneous
  Country: AU (occurrence: AU)
  Receive Date: 20151110
  Receipt Date: 20151202
  Transmission Date: 20160304
  Serious: Yes (Other)
  Sender: FDA-Public Use
  Company Number: AU-AMGEN-AUSSP2015117731

PATIENT
  Age: 66 Year
  Sex: Male

DRUGS (7)
  1. ETIDRONATE [Concomitant]
     Active Substance: ETIDRONATE DISODIUM
     Dosage: 200 MG, QD
     Dates: end: 201207
  2. MELOXICAM. [Concomitant]
     Active Substance: MELOXICAM
  3. IBUPROFEN. [Concomitant]
     Active Substance: IBUPROFEN
     Dosage: UNK
     Dates: start: 201011
  4. ALENDRONATE [Concomitant]
     Active Substance: ALENDRONATE SODIUM
     Dosage: UNK
     Dates: start: 201011
  5. INDOMETHACIN                       /00003801/ [Concomitant]
     Active Substance: INDOMETHACIN
     Dosage: UNK
     Dates: end: 201207
  6. PROLIA [Suspect]
     Active Substance: DENOSUMAB
     Indication: EXTRASKELETAL OSSIFICATION
     Dosage: UNK UNK, Q6MO
     Route: 065
     Dates: start: 201008
  7. ZOLEDRONIC ACID [Concomitant]
     Active Substance: ZOLEDRONIC ACID
     Dosage: UNK
     Route: 042
     Dates: start: 201209

REACTIONS (11)
  - Aortic dissection [Unknown]
  - Gastrointestinal haemorrhage [Unknown]
  - Hyperphosphataemia [Unknown]
  - Asthenia [Unknown]
  - Therapeutic response unexpected [Unknown]
  - Walking aid user [Unknown]
  - Hip surgery [Unknown]
  - Inappropriate schedule of drug administration [Unknown]
  - Drug intolerance [Unknown]
  - Therapeutic response decreased [Unknown]
  - Off label use [Unknown]

NARRATIVE: CASE EVENT DATE: 201009
